FAERS Safety Report 5133558-8 (Version None)
Quarter: 2006Q4

REPORT INFORMATION
  Report Type: 
  Country: None (occurrence: None)
  Receive Date: 20061024
  Receipt Date: 20060411
  Transmission Date: 20070319
  Serious: Yes (Hospitalization)
  Sender: FDA-Public Use
  Company Number: PHHO2006JP06074

PATIENT
  Age: 44 Year
  Sex: Male
  Weight: 83 kg

DRUGS (15)
  1. SIMULECT [Suspect]
     Indication: RENAL TRANSPLANT
     Dosage: 20 MG, ONCE/SINGLE
     Route: 042
     Dates: start: 20041019, end: 20041019
  2. SIMULECT [Suspect]
     Dosage: 20 MG, ONCE/SINGLE
     Route: 042
     Dates: start: 20041023, end: 20041023
  3. PREDONINE [Concomitant]
     Indication: RENAL TRANSPLANT
     Dosage: 50 MG
     Route: 042
     Dates: start: 20041119, end: 20041119
  4. ADALAT [Concomitant]
     Indication: HYPERTENSION
  5. ADALAT [Concomitant]
  6. NORVASC [Concomitant]
  7. SOLU-MEDROL [Suspect]
     Indication: KIDNEY TRANSPLANT REJECTION
     Dosage: 500 MG/DAY
     Dates: start: 20041221, end: 20041223
  8. SOLU-MEDROL [Suspect]
     Dosage: 250 MG/DAY
     Dates: start: 20041224, end: 20041226
  9. SOLU-MEDROL [Suspect]
     Dosage: 125 MG/DAY
     Dates: start: 20041227, end: 20041228
  10. SANDIMMUNE [Concomitant]
     Indication: RENAL TRANSPLANT
     Dosage: 190 MG/DAY
     Dates: start: 20041019, end: 20041019
  11. NEORAL [Suspect]
     Indication: RENAL TRANSPLANT
     Dosage: 450 - 250 MG/DAY
     Route: 048
     Dates: start: 20041020
  12. NEORAL [Suspect]
     Dosage: 450 MG/DAY
     Route: 048
     Dates: start: 20041017, end: 20041018
  13. CELLCEPT [Suspect]
     Indication: RENAL TRANSPLANT
     Dosage: 1500 MG/DAY
     Route: 048
     Dates: start: 20041020
  14. PREDNISOLONE [Suspect]
     Indication: RENAL TRANSPLANT
     Dosage: 5 MG/DAY
     Route: 048
     Dates: start: 20041116
  15. PREDNISOLONE [Suspect]
     Dosage: 50 - 10 MG/DAY
     Route: 048
     Dates: start: 20041020, end: 20041115

REACTIONS (6)
  - BLOOD CREATININE INCREASED [None]
  - CYTOMEGALOVIRUS INFECTION [None]
  - DECREASED APPETITE [None]
  - GENERALISED OEDEMA [None]
  - KIDNEY TRANSPLANT REJECTION [None]
  - PYREXIA [None]
